FAERS Safety Report 6256732-6 (Version None)
Quarter: 2009Q3

REPORT INFORMATION
  Report Type: 
  Country: None (occurrence: None)
  Receive Date: 20090706
  Receipt Date: 20090625
  Transmission Date: 20100115
  Serious: Yes (Other)
  Sender: FDA-Public Use
  Company Number: DE-JNJFOC-20090608454

PATIENT
  Age: 59 Year
  Sex: Female

DRUGS (10)
  1. RISPERDAL [Suspect]
     Indication: DRUG USE FOR UNKNOWN INDICATION
     Route: 048
  2. LYRICA [Suspect]
     Indication: DRUG USE FOR UNKNOWN INDICATION
     Route: 048
  3. COTRIM [Concomitant]
     Route: 048
  4. CYMBALTA [Concomitant]
     Route: 048
  5. DIPIPERON [Concomitant]
     Route: 048
  6. TRIAMTERENE AND HYDROCHLOROTHIAZIDE [Concomitant]
     Route: 048
  7. L-THYROXIN [Concomitant]
     Route: 048
  8. NULYTELY [Concomitant]
     Route: 048
  9. OXYGESIC [Concomitant]
     Route: 048
  10. VOLTAREN [Concomitant]
     Route: 048

REACTIONS (3)
  - DISTURBANCE IN SOCIAL BEHAVIOUR [None]
  - HOSPITALISATION [None]
  - LIBIDO INCREASED [None]
